FAERS Safety Report 23297722 (Version 1)
Quarter: 2023Q4

REPORT INFORMATION
  Report Type: Spontaneous
  Country: PL (occurrence: PL)
  Receive Date: 20231214
  Receipt Date: 20231214
  Transmission Date: 20240109
  Serious: Yes (Hospitalization, Other)
  Sender: FDA-Public Use
  Company Number: PL-002147023-NVSC2023PL251692

PATIENT
  Age: 64 Year
  Sex: Female

DRUGS (3)
  1. LETROZOLE [Suspect]
     Active Substance: LETROZOLE
     Indication: Product used for unknown indication
     Dosage: UNK
     Route: 065
  2. KISQALI [Suspect]
     Active Substance: RIBOCICLIB
     Indication: Product used for unknown indication
     Dosage: 600 MILLIGRAM, ONCE A DAY (FOR 21 DAYS WITH A SEVEN-DAY BREAK)
     Route: 065
     Dates: start: 20190102
  3. KISQALI [Suspect]
     Active Substance: RIBOCICLIB
     Dosage: 400 MILLIGRAM, ONCE A DAY (FOR 21 DAYS EVERY 28 DAYS)
     Route: 065
     Dates: start: 20190213

REACTIONS (8)
  - Pancytopenia [Unknown]
  - General physical health deterioration [Unknown]
  - Platelet disorder [Unknown]
  - Cough [Unknown]
  - Pyrexia [Unknown]
  - Pneumonitis [Unknown]
  - Hepatotoxicity [Recovering/Resolving]
  - Neutropenia [Recovered/Resolved]

NARRATIVE: CASE EVENT DATE: 20190612
